FAERS Safety Report 5692967-9 (Version None)
Quarter: 2008Q2

REPORT INFORMATION
  Report Type: 
  Country: None (occurrence: None)
  Receive Date: 20080403
  Receipt Date: 20080326
  Transmission Date: 20081010
  Serious: Yes (Death)
  Sender: FDA-Public Use
  Company Number: FI-JNJFOC-20080301020

PATIENT
  Sex: Female

DRUGS (11)
  1. REMICADE [Suspect]
     Route: 042
  2. REMICADE [Suspect]
     Route: 042
  3. REMICADE [Suspect]
     Route: 042
  4. REMICADE [Suspect]
     Indication: RHEUMATOID ARTHRITIS
     Route: 042
  5. REUMACON [Suspect]
     Indication: DRUG USE FOR UNKNOWN INDICATION
  6. NEORAL [Suspect]
     Indication: DRUG USE FOR UNKNOWN INDICATION
  7. PREDNISONE TAB [Concomitant]
  8. INDOMETIN [Concomitant]
  9. RANIMEX [Concomitant]
  10. DIDRONATE [Concomitant]
     Dosage: 400 MG ONCE DAILY FOR 14 DAYS IN 3 MONTHS.
  11. CALCIUM [Concomitant]

REACTIONS (1)
  - INTRACRANIAL HAEMATOMA [None]
